FAERS Safety Report 16138904 (Version 5)
Quarter: 2020Q1

REPORT INFORMATION
  Report Type: Report from Study
  Country: US (occurrence: US)
  Receive Date: 20190330
  Receipt Date: 20200325
  Transmission Date: 20200409
  Serious: No
  Sender: FDA-Public Use
  Company Number: PHEH2019US013266

PATIENT
  Sex: Female

DRUGS (4)
  1. GLEEVEC [Suspect]
     Active Substance: IMATINIB MESYLATE
     Dosage: 300 MG, QD
     Route: 048
  2. GLEEVEC [Suspect]
     Active Substance: IMATINIB MESYLATE
     Dosage: 400 MG, QD
     Route: 048
     Dates: start: 20190228
  3. GLEEVEC [Suspect]
     Active Substance: IMATINIB MESYLATE
     Indication: GASTROINTESTINAL STROMAL TUMOUR
     Dosage: 300 MG, QD
     Route: 048
     Dates: start: 20190223
  4. GLEEVEC [Suspect]
     Active Substance: IMATINIB MESYLATE
     Dosage: 200 MG, QD
     Route: 048

REACTIONS (9)
  - Dyspnoea [Unknown]
  - Myalgia [Not Recovered/Not Resolved]
  - Influenza [Unknown]
  - Pain [Unknown]
  - Bone pain [Not Recovered/Not Resolved]
  - Drug intolerance [Unknown]
  - Malaise [Recovering/Resolving]
  - Alopecia [Unknown]
  - Pain in extremity [Unknown]
